FAERS Safety Report 19834650 (Version 1)
Quarter: 2021Q3

REPORT INFORMATION
  Report Type: Other
  Country: US (occurrence: US)
  Receive Date: 20210915
  Receipt Date: 20210915
  Transmission Date: 20211014
  Serious: No
  Sender: FDA-Public Use
  Company Number: US-LEADIANT BIOSCIENCES INC-2020STPI000404

PATIENT
  Sex: Male

DRUGS (5)
  1. MATULANE [Suspect]
     Active Substance: PROCARBAZINE HYDROCHLORIDE
     Indication: DIFFUSE LARGE B-CELL LYMPHOMA
     Dosage: 50 MG, 2 CAPSULES EVERY OTHER DAY, ALTERNATING WITH 3 CAPSULES FOR 10 DAYS , EACH 28 DAY CYCLE
     Route: 048
     Dates: start: 20200903
  2. GABAPENTIN. [Concomitant]
     Active Substance: GABAPENTIN
  3. ZOLPIDEM [Concomitant]
     Active Substance: ZOLPIDEM TARTRATE
  4. ALFUZOSIN [Concomitant]
     Active Substance: ALFUZOSIN
  5. ALLOPURINOL. [Concomitant]
     Active Substance: ALLOPURINOL

REACTIONS (1)
  - Dysphagia [Unknown]
